FAERS Safety Report 10878903 (Version 1)
Quarter: 2015Q1

REPORT INFORMATION
  Report Type: Spontaneous
  Country: BE (occurrence: BE)
  Receive Date: 20150302
  Receipt Date: 20150302
  Transmission Date: 20150721
  Serious: Yes (Other)
  Sender: FDA-Public Use
  Company Number: BE-PFIZER INC-2015073416

PATIENT
  Age: 85 Year
  Sex: Male

DRUGS (4)
  1. APOCARD [Concomitant]
     Active Substance: FLECAINIDE ACETATE
     Indication: VENTRICULAR FIBRILLATION
     Dosage: UNK
     Dates: start: 2013
  2. AVASTIN [Concomitant]
     Active Substance: BEVACIZUMAB
     Indication: MACULAR DEGENERATION
     Dosage: UNK
     Dates: start: 2014
  3. ASAFLOW [Concomitant]
     Active Substance: ASPIRIN
     Indication: VENTRICULAR FIBRILLATION
     Dosage: UNK
     Dates: start: 2013
  4. CELEBREX [Suspect]
     Active Substance: CELECOXIB
     Indication: OSTEOARTHRITIS
     Dosage: UNK
     Dates: start: 2013, end: 20150123

REACTIONS (2)
  - Retinal haemorrhage [Recovered/Resolved]
  - Vitreous haemorrhage [Recovered/Resolved]

NARRATIVE: CASE EVENT DATE: 201410
